FAERS Safety Report 11281692 (Version 2)
Quarter: 2015Q4

REPORT INFORMATION
  Report Type: Spontaneous
  Country: US (occurrence: US)
  Receive Date: 20150717
  Receipt Date: 20151015
  Transmission Date: 20160304
  Serious: Yes (Hospitalization, Other)
  Sender: FDA-Public Use
  Company Number: US-ASTRAZENECA-2015SE68471

PATIENT
  Age: 45 Year
  Sex: Female
  Weight: 49.4 kg

DRUGS (2)
  1. SEROQUEL [Suspect]
     Active Substance: QUETIAPINE FUMARATE
     Indication: BIPOLAR DISORDER
     Route: 048
     Dates: start: 2013, end: 2014
  2. SEROQUEL [Suspect]
     Active Substance: QUETIAPINE FUMARATE
     Indication: SCHIZOAFFECTIVE DISORDER
     Route: 048
     Dates: start: 2013, end: 2014

REACTIONS (11)
  - Tardive dyskinesia [Unknown]
  - Weight decreased [Unknown]
  - Pain [Unknown]
  - Adverse event [Unknown]
  - Condition aggravated [Unknown]
  - Muscle injury [Unknown]
  - Tremor [Not Recovered/Not Resolved]
  - Amnesia [Unknown]
  - Nerve injury [Unknown]
  - Brain stem syndrome [Unknown]
  - Abasia [Unknown]

NARRATIVE: CASE EVENT DATE: 2014
